FAERS Safety Report 21175062 (Version 1)
Quarter: 2022Q3

REPORT INFORMATION
  Report Type: Spontaneous
  Country: US (occurrence: US)
  Receive Date: 20220805
  Receipt Date: 20220805
  Transmission Date: 20221027
  Serious: Yes (Other)
  Sender: FDA-Public Use
  Company Number: US-SUN PHARMACEUTICAL INDUSTRIES LTD-2022R1-347147

PATIENT
  Sex: Female

DRUGS (1)
  1. CHLORTHALIDONE [Suspect]
     Active Substance: CHLORTHALIDONE
     Indication: Calciphylaxis
     Dosage: 25 MILLIGRAM, DAILY
     Route: 048

REACTIONS (2)
  - Hypercalcaemia [Recovered/Resolved]
  - Hypovolaemia [Recovered/Resolved]
